FAERS Safety Report 9719141 (Version 2)
Quarter: 2013Q4

REPORT INFORMATION
  Report Type: Spontaneous
  Country: GB (occurrence: GB)
  Receive Date: 20131127
  Receipt Date: 20131127
  Transmission Date: 20140711
  Serious: Yes (Hospitalization)
  Sender: FDA-Public Use
  Company Number: PHHY2013GB128073

PATIENT
  Age: 66 Year
  Sex: Female

DRUGS (6)
  1. BISOPROLOL FUMARATE [Suspect]
  2. FLECAINIDE ACETATE [Suspect]
     Dosage: 150 MG, BID
     Route: 048
     Dates: start: 201008
  3. WARFARIN [Concomitant]
     Route: 048
  4. ASPIRIN [Concomitant]
     Dosage: 75 MG, IN MORNING
     Route: 048
  5. DRONEDARONE [Concomitant]
     Dosage: 400 MG, BID
     Route: 048
  6. PERINDOPRIL [Concomitant]

REACTIONS (5)
  - Head injury [Unknown]
  - Atrial fibrillation [Unknown]
  - Syncope [Unknown]
  - Dizziness [Unknown]
  - Palpitations [Unknown]
